FAERS Safety Report 14372205 (Version 2)
Quarter: 2018Q1

REPORT INFORMATION
  Report Type: Spontaneous
  Country: JP (occurrence: JP)
  Receive Date: 20180110
  Receipt Date: 20180126
  Transmission Date: 20180509
  Serious: Yes (Other)
  Sender: FDA-Public Use
  Company Number: JP-GUERBET-JP-20170221

PATIENT
  Age: 9 Decade
  Sex: Male

DRUGS (3)
  1. EPIRUBICIN [Concomitant]
     Active Substance: EPIRUBICIN
     Indication: TRANSCATHETER ARTERIAL CHEMOEMBOLISATION
     Route: 013
  2. LIPIODOL [Suspect]
     Active Substance: ETHIODIZED OIL
     Indication: TRANSCATHETER ARTERIAL CHEMOEMBOLISATION
     Route: 013
  3. GELATIN [Concomitant]
     Active Substance: GELATIN
     Indication: TRANSCATHETER ARTERIAL CHEMOEMBOLISATION
     Route: 013

REACTIONS (3)
  - Escherichia test positive [Recovering/Resolving]
  - Clostridium test positive [Recovering/Resolving]
  - Liver abscess [Recovering/Resolving]

NARRATIVE: CASE EVENT DATE: 201609
